FAERS Safety Report 6193851-7 (Version None)
Quarter: 2009Q2

REPORT INFORMATION
  Report Type: 
  Country: None (occurrence: None)
  Receive Date: 20090514
  Receipt Date: 20090501
  Transmission Date: 20091009
  Serious: Yes (Other)
  Sender: FDA-Public Use
  Company Number: 220001L09GBR

PATIENT
  Age: 41 Year
  Sex: Female

DRUGS (4)
  1. SOMATROPIN (SOMATROPIN) [Suspect]
     Indication: HYPOPITUITARISM
     Dosage: 0.6 IU, 1 IN 1 DAYS
     Dates: start: 20041201, end: 20060801
  2. INSULIN (INSULIN /00030501/) [Concomitant]
  3. HORMONE REPLACEMENT THERAPY (HORMONES AND RELATED AGENTS) [Concomitant]
  4. SIMVASTATIN [Concomitant]

REACTIONS (1)
  - DIABETIC RETINOPATHY [None]
